FAERS Safety Report 13917792 (Version 1)
Quarter: 2017Q3

REPORT INFORMATION
  Report Type: Spontaneous
  Country: US (occurrence: US)
  Receive Date: 20170829
  Receipt Date: 20170829
  Transmission Date: 20171127
  Serious: Yes (Death)
  Sender: FDA-Public Use
  Company Number: US-JUBILANT CADISTA PHARMACEUTICALS-2017JUB00298

PATIENT
  Age: 29 Year
  Sex: Female

DRUGS (7)
  1. PROTONIX [Suspect]
     Active Substance: PANTOPRAZOLE SODIUM
  2. PREDNISONE. [Suspect]
     Active Substance: PREDNISONE
  3. MIDODRINE [Suspect]
     Active Substance: MIDODRINE
  4. SILDENAFIL. [Suspect]
     Active Substance: SILDENAFIL
  5. AMBRISENTAN [Suspect]
     Active Substance: AMBRISENTAN
     Dosage: 10 MG, UNK
  6. BUMEX [Suspect]
     Active Substance: BUMETANIDE
  7. REMODULIN [Suspect]
     Active Substance: TREPROSTINIL
     Route: 058

REACTIONS (1)
  - Death [Fatal]

NARRATIVE: CASE EVENT DATE: 20170220
